FAERS Safety Report 8305571-0 (Version None)
Quarter: 2012Q2

REPORT INFORMATION
  Report Type: 
  Country: None (occurrence: None)
  Receive Date: 20120423
  Receipt Date: 20120417
  Transmission Date: 20120825
  Serious: Yes (Hospitalization)
  Sender: FDA-Public Use
  Company Number: US-BAYER-2012-036953

PATIENT
  Age: 62 Year
  Sex: Male

DRUGS (1)
  1. BETASERON [Suspect]
     Indication: MULTIPLE SCLEROSIS
     Dosage: 2 MIU, QOD
     Route: 058
     Dates: start: 20120413

REACTIONS (4)
  - FATIGUE [None]
  - ATRIAL FLUTTER [None]
  - MYALGIA [None]
  - TACHYCARDIA [None]
